FAERS Safety Report 18243117 (Version 1)
Quarter: 2020Q3

REPORT INFORMATION
  Report Type: Spontaneous
  Country: FR (occurrence: FR)
  Receive Date: 20200908
  Receipt Date: 20200908
  Transmission Date: 20201103
  Serious: Yes (Life-Threatening)
  Sender: FDA-Public Use
  Company Number: FR-TEVA-2020-FR-1823657

PATIENT
  Age: 31 Year
  Sex: Male

DRUGS (1)
  1. DIAZEPAM. [Suspect]
     Active Substance: DIAZEPAM
     Dosage: UNIT DOSE : 10 MILLIGRAM
     Route: 048

REACTIONS (3)
  - Cognitive disorder [Recovered/Resolved]
  - Drug withdrawal convulsions [Recovered/Resolved]
  - Generalised tonic-clonic seizure [Recovered/Resolved]
